FAERS Safety Report 17466790 (Version 1)
Quarter: 2020Q1

REPORT INFORMATION
  Report Type: Spontaneous
  Country: US (occurrence: US)
  Receive Date: 20200213
  Receipt Date: 20200213
  Transmission Date: 20200409
  Serious: Yes (Death)
  Sender: FDA-Public Use
  Company Number: None

PATIENT
  Age: 72 Year
  Sex: Male
  Weight: 99.79 kg

DRUGS (1)
  1. LEVOFLOXACIN (LEVOFLOXACIN 250MG TAB) [Suspect]
     Active Substance: LEVOFLOXACIN
     Indication: AORTIC ANEURYSM RUPTURE
     Route: 054
     Dates: start: 20190111, end: 20190118

REACTIONS (6)
  - Asthenia [None]
  - Haemorrhage [None]
  - Pallor [None]
  - Haemoptysis [None]
  - Pneumonia [None]
  - Cardiac arrest [None]
